FAERS Safety Report 8013507-5 (Version None)
Quarter: 2011Q4

REPORT INFORMATION
  Report Type: 
  Country: None (occurrence: None)
  Receive Date: 20111229
  Receipt Date: 20111219
  Transmission Date: 20120403
  Serious: Yes (Other)
  Sender: FDA-Public Use
  Company Number: JP-ASTRAZENECA-2011SE72026

PATIENT
  Age: 72 Year
  Sex: Male
  Weight: 60 kg

DRUGS (12)
  1. AMLODIPINE [Concomitant]
     Indication: HYPERTENSION
     Route: 048
     Dates: start: 20110804
  2. SPIRIVA [Concomitant]
     Indication: ASTHMA
     Route: 055
     Dates: start: 20060101
  3. MAGMITT [Concomitant]
     Indication: CONSTIPATION
     Route: 048
     Dates: start: 20110721
  4. TEGRETOL [Suspect]
     Indication: CENTRAL PAIN SYNDROME
     Dosage: 100-200 MG TWICE A DAY
     Route: 048
     Dates: start: 20110829, end: 20111121
  5. CELESTAMINE TAB [Concomitant]
     Indication: DRUG ERUPTION
     Route: 048
     Dates: start: 20111114, end: 20111118
  6. UNKNOWNDRUG [Concomitant]
     Indication: POLLAKIURIA
     Route: 048
     Dates: start: 20110804
  7. ROHYPNOL [Concomitant]
     Indication: INSOMNIA
     Dosage: 1 G TO 0.5 G AS REQUIRED
     Route: 048
     Dates: start: 20110720
  8. INTENURSE [Concomitant]
     Indication: MUSCULOSKELETAL PAIN
     Dosage: 1 TO 2 DF DAILY
     Route: 062
     Dates: start: 20110829
  9. SODIUM PICOSULFATE HYDRATE [Concomitant]
     Indication: CONSTIPATION
     Dosage: 5 TO 10 DROPS DAILY
     Route: 048
     Dates: start: 20110808
  10. CRESTOR [Suspect]
     Indication: DYSLIPIDAEMIA
     Route: 048
     Dates: start: 20111105, end: 20111112
  11. FAMOTIDINE [Concomitant]
     Indication: GASTRITIS
     Route: 048
     Dates: start: 20110804
  12. OLMESARTAN MEDOXOMIL [Concomitant]
     Indication: HYPERTENSION
     Route: 048
     Dates: start: 20110601

REACTIONS (1)
  - DRUG ERUPTION [None]
